FAERS Safety Report 4914037-7 (Version None)
Quarter: 2006Q1

REPORT INFORMATION
  Report Type: 
  Country: None (occurrence: None)
  Receive Date: 20060206
  Receipt Date: 20060123
  Transmission Date: 20060701
  Serious: Yes (Hospitalization)
  Sender: FDA-Public Use
  Company Number: 2005BH002173

PATIENT
  Age: 51 Year
  Sex: Male
  Weight: 91.4 kg

DRUGS (5)
  1. ADVATE (OCTOCOG ALFA) [Suspect]
     Indication: FACTOR VIII DEFICIENCY
     Dosage: SEE IMAGE
     Route: 042
     Dates: start: 20050422, end: 20050915
  2. ADVATE (OCTOCOG ALFA) [Suspect]
     Indication: FACTOR VIII DEFICIENCY
     Dosage: SEE IMAGE
     Route: 042
     Dates: start: 20050916, end: 20050927
  3. ADVATE (OCTOCOG ALFA) [Suspect]
     Indication: FACTOR VIII DEFICIENCY
     Dosage: SEE IMAGE
     Route: 042
     Dates: start: 20050919
  4. ADVATE (OCTOCOG ALFA) [Suspect]
  5. ADVATE (OCTOCOG ALFA) [Suspect]

REACTIONS (4)
  - HYPERSENSITIVITY [None]
  - LOCAL SWELLING [None]
  - PAIN [None]
  - SWELLING [None]
